FAERS Safety Report 19267180 (Version 1)
Quarter: 2021Q2

REPORT INFORMATION
  Report Type: Spontaneous
  Country: US (occurrence: US)
  Receive Date: 20210517
  Receipt Date: 20210517
  Transmission Date: 20210717
  Serious: No
  Sender: FDA-Public Use
  Company Number: US-INCYTE CORPORATION-2021IN004166

PATIENT

DRUGS (1)
  1. JAKAFI [Suspect]
     Active Substance: RUXOLITINIB
     Indication: POLYCYTHAEMIA VERA
     Dosage: 10 MILLIGRAM, BID
     Route: 048
     Dates: start: 20210414

REACTIONS (5)
  - Intentional product use issue [Unknown]
  - Diarrhoea [Unknown]
  - Lactose intolerance [Unknown]
  - Abdominal discomfort [Unknown]
  - Flatulence [Unknown]
